FAERS Safety Report 23859322 (Version 1)
Quarter: 2024Q2

REPORT INFORMATION
  Report Type: Spontaneous
  Country: US (occurrence: None)
  Receive Date: 20240515
  Receipt Date: 20240515
  Transmission Date: 20240716
  Serious: No
  Sender: FDA-Public Use
  Company Number: None

PATIENT
  Age: 66 Year
  Sex: 0

DRUGS (2)
  1. VERZENIO [Suspect]
     Active Substance: ABEMACICLIB
  2. IMODIUM [Suspect]
     Active Substance: LOPERAMIDE HYDROCHLORIDE

REACTIONS (6)
  - Diarrhoea [None]
  - Haemorrhoids [None]
  - Haemorrhage [None]
  - Pain [None]
  - Pyrexia [None]
  - Fatigue [None]

NARRATIVE: CASE EVENT DATE: 20240515
